FAERS Safety Report 5245925-2 (Version None)
Quarter: 2007Q1

REPORT INFORMATION
  Report Type: 
  Country: None (occurrence: None)
  Receive Date: 20070221
  Receipt Date: 20070214
  Transmission Date: 20070707
  Serious: Yes (Hospitalization)
  Sender: FDA-Public Use
  Company Number: 2007SP000683

PATIENT
  Age: 46 Year
  Sex: Female
  Weight: 118 kg

DRUGS (6)
  1. DIPROSONE [Suspect]
     Indication: DRUG USE FOR UNKNOWN INDICATION
     Dosage: QD; TOP
     Route: 061
     Dates: start: 20061113, end: 20061120
  2. NOCERTONE (OXETORONE FUMARATE) [Suspect]
     Indication: MIGRAINE
     Dosage: 60 MG;BID;PO
     Route: 048
     Dates: end: 20061219
  3. PROPOFAN (PROPOFAN /01607901/) [Suspect]
     Indication: MIGRAINE
     Dosage: 27 MG;PRN;PO
     Route: 048
     Dates: start: 20061020, end: 20061207
  4. LAMISIL [Suspect]
     Indication: INTERTRIGO
     Dosage: 250 MG;QD;PO
     Route: 048
     Dates: start: 20061107, end: 20061123
  5. CERAZETTE (DESOGESTREL) [Suspect]
     Indication: CONTRACEPTION
     Dosage: 1 DF;QD;PO
     Route: 048
     Dates: start: 20061026, end: 20061219
  6. ECONAZOLE (ECONAZOLE) [Suspect]
     Indication: INTERTRIGO
     Dosage: TOP
     Route: 061
     Dates: start: 20061107, end: 20061128

REACTIONS (8)
  - ANTINUCLEAR ANTIBODY POSITIVE [None]
  - BURNING SENSATION [None]
  - INTERTRIGO [None]
  - MONOCYTE COUNT INCREASED [None]
  - NEUTROPHIL COUNT INCREASED [None]
  - OEDEMA PERIPHERAL [None]
  - PUSTULAR PSORIASIS [None]
  - WHITE BLOOD CELL COUNT INCREASED [None]
